FAERS Safety Report 5421525-6 (Version None)
Quarter: 2007Q3

REPORT INFORMATION
  Report Type: 
  Country: None (occurrence: None)
  Receive Date: 20070726
  Receipt Date: 20061130
  Transmission Date: 20080115
  Serious: Yes (Hospitalization)
  Sender: FDA-Public Use
  Company Number: US200612000202

PATIENT
  Age: 80 Year
  Sex: Female
  Weight: 39 kg

DRUGS (1)
  1. FORTEO [Suspect]
     Indication: OSTEOPOROSIS
     Dates: start: 20050901

REACTIONS (2)
  - PNEUMONIA [None]
  - WEIGHT DECREASED [None]
